FAERS Safety Report 7146558-3 (Version None)
Quarter: 2010Q4

REPORT INFORMATION
  Report Type: 
  Country: None (occurrence: None)
  Receive Date: 20101208
  Receipt Date: 20100910
  Transmission Date: 20110411
  Serious: No
  Sender: FDA-Public Use
  Company Number: US-ABBOTT-10P-163-0671024-00

PATIENT
  Sex: Male
  Weight: 88.53 kg

DRUGS (3)
  1. ERY-TAB [Suspect]
     Indication: ACNE
  2. VYVANSE [Concomitant]
     Indication: PRODUCT USED FOR UNKNOWN INDICATION
  3. ZYRTEC [Concomitant]
     Indication: PRODUCT USED FOR UNKNOWN INDICATION

REACTIONS (3)
  - ABDOMINAL DISCOMFORT [None]
  - DECREASED APPETITE [None]
  - WEIGHT DECREASED [None]
